FAERS Safety Report 9794545 (Version 1)
Quarter: 2014Q1

REPORT INFORMATION
  Report Type: Spontaneous
  Country: KR (occurrence: KR)
  Receive Date: 20140102
  Receipt Date: 20140102
  Transmission Date: 20141002
  Serious: Yes (Hospitalization, Other)
  Sender: FDA-Public Use
  Company Number: KR-ALEXION PHARMACEUTICALS INC.-A201304633

PATIENT
  Age: 54 Year
  Sex: Male

DRUGS (7)
  1. SOLIRIS 300MG [Suspect]
     Indication: PAROXYSMAL NOCTURNAL HAEMOGLOBINURIA
     Dosage: 600 MG, QW
     Route: 042
     Dates: start: 20130726, end: 20130816
  2. SOLIRIS 300MG [Suspect]
     Dosage: 900 MG, Q2W
     Route: 042
     Dates: start: 20130822
  3. NORMAL SALINE [Concomitant]
     Indication: DEHYDRATION
     Dosage: UNK, 500 ML
     Route: 042
     Dates: start: 20130818, end: 20130819
  4. PHENIRAMINE [Concomitant]
     Indication: PROPHYLAXIS
     Dosage: 4 MG, SINGLE
     Route: 042
     Dates: start: 20130818, end: 20130818
  5. HEXAMIDINE [Concomitant]
     Indication: THERAPEUTIC GARGLE
     Dosage: 100 ML, SINGLE
     Route: 048
     Dates: start: 20130819, end: 20130819
  6. NORZYME [Concomitant]
     Indication: DYSPEPSIA
     Dosage: 2 CAPSULES
     Route: 048
     Dates: start: 20130819, end: 20130819
  7. STILNOX [Concomitant]
     Indication: INSOMNIA
     Dosage: 6.26 MG, UNK
     Route: 048
     Dates: start: 20130819, end: 20130819

REACTIONS (7)
  - Pruritus [Recovered/Resolved]
  - Dizziness [Recovered/Resolved]
  - Myalgia [Recovered/Resolved]
  - Haemoglobin decreased [Recovered/Resolved]
  - Blood creatinine increased [Unknown]
  - Blood lactate dehydrogenase increased [Unknown]
  - White blood cell count decreased [Unknown]
